FAERS Safety Report 18577183 (Version 1)
Quarter: 2020Q4

REPORT INFORMATION
  Report Type: Spontaneous
  Country: JP (occurrence: JP)
  Receive Date: 20201203
  Receipt Date: 20201203
  Transmission Date: 20210114
  Serious: Yes (Hospitalization)
  Sender: FDA-Public Use
  Company Number: JP-009507513-2011JPN004069J

PATIENT
  Age: 70 Year
  Sex: Male
  Weight: 59 kg

DRUGS (19)
  1. MECOBALAMIN [Concomitant]
     Active Substance: METHYLCOBALAMIN
     Dosage: UNK
     Route: 048
  2. CARBOPLATIN. [Concomitant]
     Active Substance: CARBOPLATIN
     Dosage: UNK
     Route: 065
     Dates: start: 20200618
  3. PACLITAXEL. [Concomitant]
     Active Substance: PACLITAXEL
     Dosage: UNK
     Route: 065
     Dates: start: 20200618
  4. OXINORM [Concomitant]
     Dosage: UNK
     Route: 048
  5. QUETIAPINE FUMARATE. [Concomitant]
     Active Substance: QUETIAPINE FUMARATE
     Dosage: 12.5 MILLIGRAM, UNKNOWN
     Route: 048
     Dates: start: 20200528, end: 20200602
  6. ETHYL ICOSAPENTATE [Concomitant]
     Active Substance: ICOSAPENT ETHYL
     Dosage: UNKNOWN
     Route: 048
  7. OXYCODONE HYDROCHLORIDE HYDRATE [Concomitant]
     Active Substance: OXYCODONE HYDROCHLORIDE
     Dosage: UNK
     Route: 048
  8. LYRICA [Concomitant]
     Active Substance: PREGABALIN
     Dosage: UNK
     Route: 048
  9. CEFTRIAXONE SODIUM. [Concomitant]
     Active Substance: CEFTRIAXONE SODIUM
     Indication: PYREXIA
     Dosage: 2 GRAM, Q24H
     Route: 065
     Dates: start: 20200515, end: 20200601
  10. OMEPRAZOLE. [Concomitant]
     Active Substance: OMEPRAZOLE
     Dosage: UNK
     Route: 048
  11. PACLITAXEL. [Concomitant]
     Active Substance: PACLITAXEL
     Indication: LUNG SQUAMOUS CELL CARCINOMA STAGE III
     Dosage: UNK
     Route: 065
     Dates: start: 20200513, end: 20200521
  12. QUETIAPINE FUMARATE. [Concomitant]
     Active Substance: QUETIAPINE FUMARATE
     Dosage: 25 MILLIGRAM, UNKNOWN
     Route: 048
     Dates: start: 20200603
  13. BELSOMRA [Suspect]
     Active Substance: SUVOREXANT
     Indication: DELIRIUM
  14. ACETAMINOPHEN. [Concomitant]
     Active Substance: ACETAMINOPHEN
     Dosage: UNKNOWN
     Route: 048
  15. MAGMITT [Concomitant]
     Active Substance: MAGNESIUM OXIDE
     Dosage: UNK
     Route: 048
  16. CARBOPLATIN. [Concomitant]
     Active Substance: CARBOPLATIN
     Indication: LUNG SQUAMOUS CELL CARCINOMA STAGE III
     Dosage: UNK
     Route: 065
     Dates: start: 20200513, end: 20200521
  17. TAZOBACTAM SODIUM_PIPERACILLIN SODIUM [Concomitant]
     Dosage: 4.5G, Q6H
     Route: 065
     Dates: start: 20200601
  18. BELSOMRA [Suspect]
     Active Substance: SUVOREXANT
     Indication: INSOMNIA
     Dosage: 15 MILLIGRAM, QD
     Route: 048
     Dates: start: 20200513, end: 20200602
  19. ROSUVASTATIN CALCIUM. [Concomitant]
     Active Substance: ROSUVASTATIN CALCIUM
     Dosage: UNK
     Route: 048

REACTIONS (1)
  - Hepatic function abnormal [Recovering/Resolving]

NARRATIVE: CASE EVENT DATE: 20200603
